FAERS Safety Report 10377049 (Version 2)
Quarter: 2014Q3

REPORT INFORMATION
  Report Type: Report from Study
  Country: FR (occurrence: FR)
  Receive Date: 20140812
  Receipt Date: 20140815
  Transmission Date: 20150326
  Serious: Yes (Death)
  Sender: FDA-Public Use
  Company Number: FR-ROCHE-1447414

PATIENT
  Age: 78 Year
  Sex: Female
  Weight: 60 kg

DRUGS (3)
  1. RITUXIMAB [Suspect]
     Active Substance: RITUXIMAB
     Indication: MALIGNANT LYMPHOID NEOPLASM
     Dosage: LAST DOSE 375 MG/M2 WAS ADMINISTERED ON 31/JUL/2014 BEFORE DEATH.?CUMULATIVE DOSE SINCE FIRST ADMINI
     Route: 042
     Dates: start: 20140731
  2. DEXAMETHASONE. [Suspect]
     Active Substance: DEXAMETHASONE
     Indication: MALIGNANT LYMPHOID NEOPLASM
     Dosage: LAST DOSE 40 MG WAS ADMINISTERED ON 04/AUG/2014 BEFORE DEATH.?CUMULATIVE DOSE SINCE FIRST ADMINISTRA
     Route: 048
     Dates: start: 20140801
  3. LENALIDOMIDE [Suspect]
     Active Substance: LENALIDOMIDE
     Indication: MALIGNANT LYMPHOID NEOPLASM
     Dosage: LAST DOSE 20 MG WAS ADMINISTERED ON 05/AUG/2014 BEFORE DEATH.?CUMULATIVE DOSE SINCE FIRST ADMINISTRA
     Route: 048
     Dates: start: 20140731

REACTIONS (1)
  - Sudden death [Fatal]

NARRATIVE: CASE EVENT DATE: 20140806
